FAERS Safety Report 21143530 (Version 1)
Quarter: 2022Q3

REPORT INFORMATION
  Report Type: Spontaneous
  Country: ES (occurrence: ES)
  Receive Date: 20220728
  Receipt Date: 20220728
  Transmission Date: 20221026
  Serious: Yes (Hospitalization)
  Sender: FDA-Public Use
  Company Number: None

PATIENT
  Sex: Male

DRUGS (1)
  1. PROPOFOL [Suspect]
     Active Substance: PROPOFOL
     Indication: Surgery
     Dosage: UNK
     Route: 065
     Dates: start: 20220707, end: 20220707

REACTIONS (2)
  - Haemodynamic instability [Unknown]
  - Medication error [Unknown]

NARRATIVE: CASE EVENT DATE: 20220707
